FAERS Safety Report 5099336-3 (Version None)
Quarter: 2006Q3

REPORT INFORMATION
  Report Type: 
  Country: None (occurrence: None)
  Receive Date: 20060726
  Receipt Date: 20060502
  Transmission Date: 20061208
  Serious: No
  Sender: FDA-Public Use
  Company Number: 012231

PATIENT
  Age: 60 Year
  Sex: Male

DRUGS (1)
  1. PRIALT [Suspect]
     Indication: COMPLEX REGIONAL PAIN SYNDROME
     Dosage: ONCE/HOUR, INTRATHECAL
     Route: 037
     Dates: start: 20060101

REACTIONS (1)
  - TINNITUS [None]
